FAERS Safety Report 8318007-0 (Version None)
Quarter: 2012Q2

REPORT INFORMATION
  Report Type: 
  Country: None (occurrence: None)
  Receive Date: 20120427
  Receipt Date: 20120419
  Transmission Date: 20120825
  Serious: No
  Sender: FDA-Public Use
  Company Number: US-PFIZER INC-2012050037

PATIENT
  Sex: Female
  Weight: 61 kg

DRUGS (4)
  1. NEXIUM [Concomitant]
     Indication: GASTROOESOPHAGEAL REFLUX DISEASE
     Dosage: 40 MG, 2X/DAY
  2. COLESTIPOL HYDROCHLORIDE [Suspect]
     Indication: DIARRHOEA
     Dosage: UNK
  3. REGLAN [Concomitant]
     Indication: GASTROOESOPHAGEAL REFLUX DISEASE
     Dosage: 10 MG, 2X/DAY
     Route: 048
  4. COLESTID [Suspect]
     Indication: DIARRHOEA
     Dosage: 4 G, 2X/DAY
     Route: 048

REACTIONS (9)
  - ABDOMINAL PAIN UPPER [None]
  - FLATULENCE [None]
  - DYSPEPSIA [None]
  - DRUG INEFFECTIVE [None]
  - ABDOMINAL DISTENSION [None]
  - NAUSEA [None]
  - DISCOMFORT [None]
  - FEELING ABNORMAL [None]
  - DRUG HYPERSENSITIVITY [None]
